FAERS Safety Report 15790418 (Version 6)
Quarter: 2020Q4

REPORT INFORMATION
  Report Type: Spontaneous
  Country: US (occurrence: US)
  Receive Date: 20190104
  Receipt Date: 20201126
  Transmission Date: 20210113
  Serious: Yes (Hospitalization, Other)
  Sender: FDA-Public Use
  Company Number: US-PFIZER INC-2018005068

PATIENT
  Age: 61 Year
  Sex: Female
  Weight: 76.2 kg

DRUGS (3)
  1. XELJANZ [Suspect]
     Active Substance: TOFACITINIB CITRATE
     Indication: AUTOIMMUNE DISORDER
     Dosage: 5 MG, 2X/DAY (ONE IN MORNING AND ONE AT NIGHT)
     Route: 048
     Dates: start: 2018, end: 202006
  2. PLAQUENIL [Concomitant]
     Active Substance: HYDROXYCHLOROQUINE SULFATE
     Indication: AUTOIMMUNE DISORDER
     Dosage: 300 MG, DAILY (1 1/2 TABLETS A DAY)
     Route: 048
  3. XELJANZ [Suspect]
     Active Substance: TOFACITINIB CITRATE
     Indication: PAIN

REACTIONS (12)
  - Intervertebral disc protrusion [Unknown]
  - Fibromyalgia [Unknown]
  - Sepsis [Unknown]
  - Rheumatoid arthritis [Unknown]
  - Post procedural complication [Unknown]
  - Systemic lupus erythematosus [Unknown]
  - Clostridium difficile infection [Unknown]
  - Wound [Unknown]
  - Condition aggravated [Unknown]
  - Joint swelling [Unknown]
  - Raynaud^s phenomenon [Unknown]
  - Pain [Unknown]
